FAERS Safety Report 5240920-1 (Version None)
Quarter: 2007Q1

REPORT INFORMATION
  Report Type: 
  Country: None (occurrence: None)
  Receive Date: 20061201
  Receipt Date: 20060906
  Transmission Date: 20070707
  Serious: No
  Sender: FDA-Public Use
  Company Number: 2006PV020791

PATIENT
  Age: 58 Year
  Sex: Male
  Weight: 108.8633 kg

DRUGS (5)
  1. BYETTA [Suspect]
     Indication: DIABETES MELLITUS NON-INSULIN-DEPENDENT
     Dosage: 5 MCG;BID;SC
     Route: 058
     Dates: start: 20060801
  2. AMARYL [Concomitant]
  3. ACTOS [Concomitant]
  4. LEVITRA [Concomitant]
  5. CRESTOR [Concomitant]

REACTIONS (2)
  - LIBIDO DECREASED [None]
  - NAUSEA [None]
